FAERS Safety Report 10808977 (Version 1)
Quarter: 2015Q1

REPORT INFORMATION
  Report Type: Spontaneous
  Country: US (occurrence: None)
  Receive Date: 20150212
  Receipt Date: 20150212
  Transmission Date: 20150721
  Serious: Yes (Death)
  Sender: FDA-Public Use
  Company Number: US-H14001-15-00234

PATIENT

DRUGS (2)
  1. FENTANYL (FENTANYL) [Suspect]
     Active Substance: FENTANYL
     Indication: ANAESTHESIA
     Dosage: NOT OTHERWISE SPECIFIED
     Route: 042
  2. FENTANYL CITRATE INJECTION [Suspect]
     Active Substance: FENTANYL CITRATE
     Indication: ANAESTHESIA
     Dosage: NOT OTHERWISE SPECIFIED
     Route: 042

REACTIONS (3)
  - Procedural complication [None]
  - Anaesthetic complication vascular [None]
  - Blood pressure decreased [None]

NARRATIVE: CASE EVENT DATE: 2015
